FAERS Safety Report 5381695-5 (Version None)
Quarter: 2007Q3

REPORT INFORMATION
  Report Type: 
  Country: None (occurrence: None)
  Receive Date: 20070705
  Receipt Date: 20070705
  Transmission Date: 20080115
  Serious: Yes (Other)
  Sender: FDA-Public Use
  Company Number: None

PATIENT
  Sex: Female

DRUGS (1)
  1. RAPTIVA [Suspect]
     Indication: PSORIASIS
     Dosage: 1ML WEEKLY SQ
     Route: 058
     Dates: start: 20070221, end: 20070604

REACTIONS (1)
  - INJECTION SITE CELLULITIS [None]
